FAERS Safety Report 18409802 (Version 1)
Quarter: 2020Q4

REPORT INFORMATION
  Report Type: Spontaneous
  Country: GB (occurrence: GB)
  Receive Date: 20201021
  Receipt Date: 20201021
  Transmission Date: 20210114
  Serious: Yes (Other)
  Sender: FDA-Public Use
  Company Number: GB-ACCORD-205816

PATIENT
  Age: 51 Year
  Sex: Female
  Weight: 51.25 kg

DRUGS (2)
  1. AMOXICILLIN. [Concomitant]
     Active Substance: AMOXICILLIN
  2. AMITRIPTYLINE [Suspect]
     Active Substance: AMITRIPTYLINE
     Indication: ORAL PAIN
     Route: 048
     Dates: start: 20200925, end: 20200925

REACTIONS (4)
  - Vomiting [Recovered/Resolved with Sequelae]
  - Visual impairment [Recovered/Resolved with Sequelae]
  - Migraine [Recovered/Resolved with Sequelae]
  - Anger [Recovered/Resolved with Sequelae]

NARRATIVE: CASE EVENT DATE: 20200925
